FAERS Safety Report 12651054 (Version 2)
Quarter: 2020Q3

REPORT INFORMATION
  Report Type: Spontaneous
  Country: US (occurrence: US)
  Receive Date: 20160815
  Receipt Date: 20200820
  Transmission Date: 20201102
  Serious: No
  Sender: FDA-Public Use
  Company Number: US-JAZZ-2016-US-005445

PATIENT
  Sex: Male
  Weight: 81.63 kg

DRUGS (10)
  1. GINSENG [ELEUTHEROCOCCUS SENTICOSUS ROOT] [Concomitant]
  2. MELATONIN [Concomitant]
     Active Substance: MELATONIN
  3. VITAMIN D [ERGOCALCIFEROL] [Concomitant]
     Active Substance: ERGOCALCIFEROL
  4. XYREM [Suspect]
     Active Substance: SODIUM OXYBATE
     Indication: SOMNOLENCE
     Dosage: 2.25 G, BID
     Route: 048
     Dates: start: 201506, end: 201509
  5. XYREM [Suspect]
     Active Substance: SODIUM OXYBATE
     Dosage: 2.5 G, BID
     Route: 048
     Dates: start: 201510
  6. CYMBALTA [Concomitant]
     Active Substance: DULOXETINE HYDROCHLORIDE
  7. OMEGA 3 FISH OIL [FISH OIL] [Concomitant]
  8. LUNESTA [Concomitant]
     Active Substance: ESZOPICLONE
  9. XYREM [Suspect]
     Active Substance: SODIUM OXYBATE
     Indication: NARCOLEPSY
     Dosage: 2.25 G, BID
     Route: 048
     Dates: start: 200304, end: 2003
  10. FOLIC ACID. [Concomitant]
     Active Substance: FOLIC ACID

REACTIONS (7)
  - Salt craving [Unknown]
  - Hypophagia [Unknown]
  - Overweight [Unknown]
  - Hyperphagia [Unknown]
  - Constipation [Not Recovered/Not Resolved]
  - Blood aldosterone abnormal [Unknown]
  - Anxiety [Unknown]
